FAERS Safety Report 6143333-3 (Version None)
Quarter: 2009Q2

REPORT INFORMATION
  Report Type: 
  Country: None (occurrence: None)
  Receive Date: 20090403
  Receipt Date: 20090325
  Transmission Date: 20091009
  Serious: Yes (Hospitalization)
  Sender: FDA-Public Use
  Company Number: B0566810A

PATIENT
  Age: 56 Year
  Sex: Male

DRUGS (4)
  1. ONDANSETRON HCL [Suspect]
     Indication: DRUG USE FOR UNKNOWN INDICATION
     Dosage: 8MG PER DAY
     Route: 042
     Dates: start: 20090117, end: 20090117
  2. CARBOPLATIN [Suspect]
     Indication: DRUG USE FOR UNKNOWN INDICATION
     Dosage: 710MG PER DAY
     Route: 042
     Dates: start: 20090117, end: 20090117
  3. ETOPOSIDE [Suspect]
     Indication: DRUG USE FOR UNKNOWN INDICATION
     Dosage: 160MCG PER DAY
     Route: 042
     Dates: start: 20090117, end: 20090117
  4. PRIMPERAN [Suspect]
     Indication: DRUG USE FOR UNKNOWN INDICATION
     Route: 042
     Dates: start: 20090117, end: 20090117

REACTIONS (1)
  - ILEUS [None]
